FAERS Safety Report 5000217-1 (Version None)
Quarter: 2006Q2

REPORT INFORMATION
  Report Type: 
  Country: None (occurrence: None)
  Receive Date: 20060511
  Receipt Date: 20060323
  Transmission Date: 20061013
  Serious: Yes (Death)
  Sender: FDA-Public Use
  Company Number: IT-ABBOTT-06P-083-0329068-00

PATIENT
  Age: 46 Year
  Sex: Male

DRUGS (3)
  1. HUMIRA [Suspect]
     Indication: PSORIATIC ARTHROPATHY
     Route: 058
     Dates: start: 20051101, end: 20060317
  2. DICLOFENAC SODIUM [Concomitant]
     Indication: ARTHROPATHY
  3. HYPOLIPEMIC AGENT [Concomitant]
     Indication: TYPE IIA HYPERLIPIDAEMIA

REACTIONS (1)
  - ACUTE MYOCARDIAL INFARCTION [None]
